FAERS Safety Report 22274737 (Version 1)
Quarter: 2023Q2

REPORT INFORMATION
  Report Type: Spontaneous
  Country: CN (occurrence: None)
  Receive Date: 20230502
  Receipt Date: 20230502
  Transmission Date: 20230721
  Serious: Yes (Hospitalization, Other)
  Sender: FDA-Public Use
  Company Number: 2023A099429

PATIENT
  Age: 57 Year
  Sex: Male
  Weight: 56 kg

DRUGS (5)
  1. TAGRISSO [Suspect]
     Active Substance: OSIMERTINIB
     Indication: Lung adenocarcinoma
     Route: 048
     Dates: start: 20230209, end: 20230321
  2. OMEPRAZOLE [Concomitant]
     Active Substance: OMEPRAZOLE
     Indication: Gastrooesophageal reflux disease
  3. OSELTAMIVIR [Concomitant]
     Active Substance: OSELTAMIVIR
  4. IBUPROFEN [Concomitant]
     Active Substance: IBUPROFEN
  5. CEFIXIME [Concomitant]
     Active Substance: CEFIXIME

REACTIONS (4)
  - Hepatic enzyme abnormal [Not Recovered/Not Resolved]
  - Suspected drug-induced liver injury [Unknown]
  - Pneumonia [Unknown]
  - Pyrexia [Unknown]

NARRATIVE: CASE EVENT DATE: 20230321
